FAERS Safety Report 10574800 (Version 2)
Quarter: 2014Q4

REPORT INFORMATION
  Report Type: Spontaneous
  Country: DE (occurrence: DE)
  Receive Date: 20141110
  Receipt Date: 20141120
  Transmission Date: 20150529
  Serious: Yes (Hospitalization)
  Sender: FDA-Public Use
  Company Number: DE-OTSUKA-EU-2014-10551

PATIENT

DRUGS (7)
  1. ABILIFY MAINTENA [Suspect]
     Active Substance: ARIPIPRAZOLE
     Indication: SCHIZOPHRENIA, DISORGANISED TYPE
     Dosage: 400 MG MILLIGRAM(S), SINGLE
     Route: 065
     Dates: start: 20140915
  2. ABILIFY MAINTENA [Suspect]
     Active Substance: ARIPIPRAZOLE
     Dosage: 400 MG MILLIGRAM(S), SINGLE
     Route: 065
     Dates: start: 20141013
  3. ABILIFY [Concomitant]
     Active Substance: ARIPIPRAZOLE
     Indication: SCHIZOPHRENIA, DISORGANISED TYPE
     Dosage: 5 MG MILLIGRAM(S), DAILY DOSE
     Route: 048
  4. AMISULPRID [Concomitant]
     Active Substance: AMISULPRIDE
     Indication: SCHIZOPHRENIA, DISORGANISED TYPE
     Dosage: 600 MG MILLIGRAM(S), DAILY DOSE
     Route: 065
  5. ESCITALOPRAM [Concomitant]
     Active Substance: ESCITALOPRAM OXALATE
     Dosage: UNK, UNKNOWN
     Route: 065
  6. ESCITALOPRAM [Concomitant]
     Active Substance: ESCITALOPRAM OXALATE
     Indication: SCHIZOPHRENIA, DISORGANISED TYPE
     Dosage: 20 MG MILLIGRAM(S), DAILY DOSE
     Route: 065
  7. AMISULPRID [Concomitant]
     Active Substance: AMISULPRIDE
     Dosage: UNK, UNKNOWN
     Route: 065

REACTIONS (2)
  - Sleep disorder [Unknown]
  - Psychomotor hyperactivity [Unknown]
